FAERS Safety Report 5513742-1 (Version None)
Quarter: 2007Q4

REPORT INFORMATION
  Report Type: 
  Country: None (occurrence: None)
  Receive Date: 20071113
  Receipt Date: 20071105
  Transmission Date: 20080405
  Serious: Yes (Other)
  Sender: FDA-Public Use
  Company Number: PHFR2007GB02580

PATIENT
  Age: 74 Year
  Sex: Female
  Weight: 48.5 kg

DRUGS (6)
  1. ZOMETA [Suspect]
     Indication: MULTIPLE MYELOMA
     Dosage: 4 MG
     Route: 042
     Dates: start: 20030207, end: 20060519
  2. PARACETAMOL [Concomitant]
     Dosage: 500 MG, PRN
     Route: 048
  3. BETAHISTINE [Concomitant]
     Indication: TINNITUS
     Dosage: 8 MG
     Route: 048
     Dates: start: 20031101
  4. RANITIDINE [Concomitant]
     Indication: HIATUS HERNIA
     Dosage: 150 MG/DAY
     Route: 048
     Dates: start: 20040401
  5. OMEPRAZOLE [Concomitant]
     Indication: DYSPEPSIA
     Dosage: 20 MG/DAY
     Route: 048
     Dates: start: 20050901
  6. VIOXX [Concomitant]
     Indication: PAIN IN EXTREMITY
     Route: 048
     Dates: start: 20031117

REACTIONS (7)
  - ALVEOLAR OSTEITIS [None]
  - BONE DISORDER [None]
  - DENTAL CARE [None]
  - DRUG HYPERSENSITIVITY [None]
  - IMPAIRED HEALING [None]
  - OSTEONECROSIS [None]
  - TOOTH EXTRACTION [None]
